FAERS Safety Report 8345396-3 (Version None)
Quarter: 2012Q2

REPORT INFORMATION
  Report Type: 
  Country: None (occurrence: None)
  Receive Date: 20120508
  Receipt Date: 20120502
  Transmission Date: 20120825
  Serious: Yes (Death, Other)
  Sender: FDA-Public Use
  Company Number: GB-PFIZER INC-2012107305

PATIENT
  Age: 57 Year
  Sex: Male
  Weight: 85 kg

DRUGS (7)
  1. DOMPERIDONE [Concomitant]
     Indication: VOMITING
     Dosage: 30-60MG
     Route: 048
     Dates: start: 20110801
  2. CYCLIZINE [Concomitant]
     Indication: VOMITING
     Route: 058
     Dates: start: 20110801
  3. DOMPERIDONE [Concomitant]
     Dosage: 30-60MG
     Route: 054
     Dates: start: 20110801
  4. ONDANSETRON HCL [Suspect]
     Indication: VOMITING
     Dosage: 8 MG, UNK
     Route: 030
     Dates: start: 20110917
  5. OXYCODONE HCL [Concomitant]
     Indication: PAIN MANAGEMENT
     Dosage: 40-60MG FOUR TIMES A DAY
     Route: 048
     Dates: start: 20110801
  6. FENTANYL [Concomitant]
     Indication: PAIN MANAGEMENT
     Dates: start: 20110501
  7. ZOPICLONE [Concomitant]
     Indication: INSOMNIA
     Dates: start: 20110101

REACTIONS (5)
  - TACHYCARDIA [None]
  - BRADYCARDIA [None]
  - OESOPHAGEAL ADENOCARCINOMA METASTATIC [None]
  - FEELING HOT [None]
  - NECK PAIN [None]
